FAERS Safety Report 6901321-0 (Version None)
Quarter: 2010Q3

REPORT INFORMATION
  Report Type: 
  Country: None (occurrence: None)
  Receive Date: 20100803
  Receipt Date: 20080117
  Transmission Date: 20110219
  Serious: No
  Sender: FDA-Public Use
  Company Number: US-PFIZER INC-2008006244

PATIENT
  Sex: Female
  Weight: 86.2 kg

DRUGS (3)
  1. LYRICA [Suspect]
     Indication: GAIT DISTURBANCE
     Dates: start: 20060101
  2. LYRICA [Suspect]
     Indication: MUSCLE TIGHTNESS
  3. TRAMADOL HYDROCHLORIDE [Concomitant]

REACTIONS (3)
  - BLOOD CHOLESTEROL ABNORMAL [None]
  - DRUG DOSE OMISSION [None]
  - THYROID FUNCTION TEST ABNORMAL [None]
